FAERS Safety Report 11546028 (Version 1)
Quarter: 2015Q3

REPORT INFORMATION
  Report Type: Report from Study
  Country: US (occurrence: US)
  Receive Date: 20150924
  Receipt Date: 20150924
  Transmission Date: 20151125
  Serious: Yes (Hospitalization, Other)
  Sender: FDA-Public Use
  Company Number: US-AMGEN-USASL2015097459

PATIENT
  Age: 55 Year
  Sex: Female

DRUGS (1)
  1. NPLATE [Suspect]
     Active Substance: ROMIPLOSTIM
     Indication: PLATELET COUNT DECREASED
     Dosage: UNK, UNK
     Route: 065
     Dates: start: 2013

REACTIONS (3)
  - Platelet count abnormal [Unknown]
  - Pleurisy [Unknown]
  - Aortic valve replacement [Unknown]
